FAERS Safety Report 20727223 (Version 4)
Quarter: 2022Q2

REPORT INFORMATION
  Report Type: Report from Study
  Country: US (occurrence: US)
  Receive Date: 20220419
  Receipt Date: 20220621
  Transmission Date: 20220721
  Serious: Yes (Hospitalization, Other)
  Sender: FDA-Public Use
  Company Number: US-GILEAD-2022-0578422

PATIENT
  Sex: Female

DRUGS (2)
  1. AMBRISENTAN [Suspect]
     Active Substance: AMBRISENTAN
     Indication: Pulmonary arterial hypertension
     Dosage: 10 MG, QD
     Route: 048
     Dates: start: 20160805
  2. ADCIRCA [Concomitant]
     Active Substance: TADALAFIL

REACTIONS (10)
  - Scleroderma [Not Recovered/Not Resolved]
  - Hypoxia [Unknown]
  - Dyspnoea exertional [Unknown]
  - Right ventricular failure [Unknown]
  - Accident at home [Unknown]
  - Haemoglobin decreased [Unknown]
  - Hernia [Not Recovered/Not Resolved]
  - Weight decreased [Unknown]
  - Gastric disorder [Unknown]
  - Gastrointestinal disorder [Unknown]
